FAERS Safety Report 6538891-0 (Version None)
Quarter: 2010Q1

REPORT INFORMATION
  Report Type: 
  Country: None (occurrence: None)
  Receive Date: 20100112
  Receipt Date: 20091204
  Transmission Date: 20100710
  Serious: Yes (Life-Threatening, Hospitalization)
  Sender: FDA-Public Use
  Company Number: DE-2009-2248

PATIENT
  Age: 76 Year
  Sex: Female

DRUGS (7)
  1. NAVELBINE [Suspect]
     Indication: BREAST CANCER METASTATIC
     Dosage: 48 MG IV
     Route: 042
     Dates: start: 20091020, end: 20091020
  2. DELIX. MFR: NOT SPECIFIED [Concomitant]
  3. ASS. MFR: NOT SPECIFIED [Concomitant]
  4. PANTOZOL. MFR: NOT SPECIFIED [Concomitant]
  5. DEXAMETHASONE [Concomitant]
  6. MELPERON [Concomitant]
  7. MCP [Concomitant]

REACTIONS (4)
  - DIARRHOEA [None]
  - GRANULOCYTOPENIA [None]
  - LEUKOPENIA [None]
  - MUCOSAL INFLAMMATION [None]
